FAERS Safety Report 7553014-7 (Version None)
Quarter: 2011Q2

REPORT INFORMATION
  Report Type: 
  Country: None (occurrence: None)
  Receive Date: 20110616
  Receipt Date: 20110606
  Transmission Date: 20111010
  Serious: Yes (Hospitalization, Other)
  Sender: FDA-Public Use
  Company Number: PHHY2011CA35712

PATIENT
  Sex: Male

DRUGS (3)
  1. AFINITOR [Suspect]
     Indication: NEUROENDOCRINE TUMOUR
     Dosage: 10 MG, DAILY
     Route: 048
     Dates: start: 20110401
  2. AFINITOR [Suspect]
     Dosage: 5 MG, UNK
     Route: 048
     Dates: end: 20110426
  3. SANDOSTATIN LAR [Suspect]
     Indication: NEUROENDOCRINE TUMOUR
     Dosage: 30 MG, EVERY FOUR WEEKS
     Route: 030
     Dates: start: 20110201, end: 20110303

REACTIONS (5)
  - BILE DUCT OBSTRUCTION [None]
  - PNEUMONIA [None]
  - BLOOD GLUCOSE INCREASED [None]
  - SEPSIS [None]
  - ABDOMINAL PAIN UPPER [None]
